FAERS Safety Report 8214506-0 (Version None)
Quarter: 2012Q1

REPORT INFORMATION
  Report Type: 
  Country: None (occurrence: None)
  Receive Date: 20120316
  Receipt Date: 20120316
  Transmission Date: 20120608
  Serious: Yes (Other)
  Sender: FDA-Public Use
  Company Number: None

PATIENT
  Age: 32 Year
  Sex: Male
  Weight: 122.92 kg

DRUGS (1)
  1. CETIRIZINE HYDROCHLORIDE [Suspect]
     Indication: SEASONAL ALLERGY
     Dosage: 1 TABLET
     Route: 048
     Dates: start: 20120312, end: 20120314

REACTIONS (5)
  - DIZZINESS [None]
  - NAUSEA [None]
  - VERTIGO [None]
  - SOMNOLENCE [None]
  - ABNORMAL DREAMS [None]
